FAERS Safety Report 7208701-7 (Version None)
Quarter: 2011Q1

REPORT INFORMATION
  Report Type: 
  Country: None (occurrence: None)
  Receive Date: 20110104
  Receipt Date: 20101229
  Transmission Date: 20110831
  Serious: No
  Sender: FDA-Public Use
  Company Number: US-PFIZER INC-2010181917

PATIENT
  Age: 46 Year
  Sex: Male
  Weight: 99.773 kg

DRUGS (1)
  1. ADVIL [Suspect]
     Indication: HEADACHE
     Dosage: 2 LIQUI-GELS, ONCE
     Route: 048
     Dates: start: 20101223, end: 20101223

REACTIONS (1)
  - DRUG INEFFECTIVE [None]
